FAERS Safety Report 8045898-3 (Version None)
Quarter: 2012Q1

REPORT INFORMATION
  Report Type: 
  Country: None (occurrence: None)
  Receive Date: 20120113
  Receipt Date: 20120110
  Transmission Date: 20120608
  Serious: Yes (Hospitalization)
  Sender: FDA-Public Use
  Company Number: US-GLAXOSMITHKLINE-A0960792A

PATIENT
  Age: 68 Year
  Sex: Female

DRUGS (10)
  1. PRILOSEC [Concomitant]
  2. FENTANYL [Concomitant]
  3. SINGULAIR [Concomitant]
  4. GLUCOSAMINE [Concomitant]
  5. CARTIA XT [Concomitant]
  6. ALPRAZOLAM [Concomitant]
  7. LEXAPRO [Concomitant]
  8. THEOPHYLLINE [Concomitant]
  9. NEURONTIN [Concomitant]
  10. VENTOLIN [Suspect]
     Indication: ASTHMA
     Dosage: 1PUFF CONTINUOUS
     Route: 055

REACTIONS (2)
  - PNEUMONIA [None]
  - DRUG INEFFECTIVE [None]
